FAERS Safety Report 14477655 (Version 1)
Quarter: 2018Q1

REPORT INFORMATION
  Report Type: Report from Study
  Country: US (occurrence: US)
  Receive Date: 20180201
  Receipt Date: 20180201
  Transmission Date: 20180509
  Serious: No
  Sender: FDA-Public Use
  Company Number: US-EXELIXIS-CABO-17009859

PATIENT
  Age: 77 Year
  Sex: Male

DRUGS (17)
  1. CABOMETYX [Suspect]
     Active Substance: CABOZANTINIB S-MALATE
     Dosage: 40 MG, QD
     Route: 048
     Dates: start: 20170627
  2. CIPRO [Concomitant]
     Active Substance: CIPROFLOXACIN HYDROCHLORIDE
  3. CABOMETYX [Suspect]
     Active Substance: CABOZANTINIB S-MALATE
     Indication: RENAL CANCER
     Dosage: 60 MG, QD
     Route: 048
     Dates: start: 20170627
  4. TRAMADOL. [Concomitant]
     Active Substance: TRAMADOL
  5. INLYTA [Concomitant]
     Active Substance: AXITINIB
  6. CLOBETASOL [Concomitant]
     Active Substance: CLOBETASOL
  7. ALPRAZOLAM. [Concomitant]
     Active Substance: ALPRAZOLAM
  8. FLUTICASONE. [Concomitant]
     Active Substance: FLUTICASONE
  9. NITROGLYCERIN. [Concomitant]
     Active Substance: NITROGLYCERIN
  10. METOPROLOL. [Concomitant]
     Active Substance: METOPROLOL
  11. PRAVASTATIN. [Concomitant]
     Active Substance: PRAVASTATIN
  12. LISINOPRIL. [Concomitant]
     Active Substance: LISINOPRIL
  13. SUTENT [Concomitant]
     Active Substance: SUNITINIB MALATE
  14. ACYCLOVIR. [Concomitant]
     Active Substance: ACYCLOVIR
  15. APAP [Concomitant]
     Active Substance: ACETAMINOPHEN
  16. HYDROCODONE [Concomitant]
     Active Substance: HYDROCODONE
  17. HYDROCORTISONE. [Concomitant]
     Active Substance: HYDROCORTISONE

REACTIONS (5)
  - Dizziness [Not Recovered/Not Resolved]
  - Muscular weakness [Not Recovered/Not Resolved]
  - Balance disorder [Not Recovered/Not Resolved]
  - Syncope [Not Recovered/Not Resolved]
  - Dysphonia [Not Recovered/Not Resolved]

NARRATIVE: CASE EVENT DATE: 201707
